FAERS Safety Report 4431585-7 (Version None)
Quarter: 2004Q3

REPORT INFORMATION
  Report Type: 
  Country: None (occurrence: None)
  Receive Date: 20040726
  Receipt Date: 20040223
  Transmission Date: 20050211
  Serious: No
  Sender: FDA-Public Use
  Company Number: US_0403101173

PATIENT
  Age: 70 Year
  Sex: Female

DRUGS (4)
  1. FORTEO [Suspect]
     Indication: ANKLE FRACTURE
     Dosage: 20 UG
     Dates: start: 20031201
  2. FORTEO [Suspect]
     Indication: OSTEOPOROSIS
     Dosage: 20 UG
     Dates: start: 20031201
  3. FORTEO [Suspect]
     Indication: RIB FRACTURE
     Dosage: 20 UG
     Dates: start: 20031201
  4. FORTEO [Suspect]
     Indication: STERNAL FRACTURE
     Dosage: 20 UG
     Dates: start: 20031201

REACTIONS (1)
  - INJECTION SITE HAEMORRHAGE [None]
